FAERS Safety Report 11309710 (Version 2)
Quarter: 2015Q3

REPORT INFORMATION
  Report Type: Report from Study
  Country: EG (occurrence: EG)
  Receive Date: 20150724
  Receipt Date: 20150729
  Transmission Date: 20151125
  Serious: No
  Sender: FDA-Public Use
  Company Number: PHHY2013EG128291

PATIENT
  Age: 7 Year
  Sex: Male

DRUGS (1)
  1. ICL670A [Suspect]
     Active Substance: DEFERASIROX
     Indication: HAEMOSIDEROSIS
     Dosage: 750 MG, OT
     Route: 048
     Dates: start: 20120414, end: 20130427

REACTIONS (3)
  - Deafness bilateral [Recovered/Resolved]
  - Serum ferritin increased [Unknown]
  - Middle ear effusion [Recovered/Resolved]

NARRATIVE: CASE EVENT DATE: 20120714
